FAERS Safety Report 9423019 (Version 1)
Quarter: 2013Q3

REPORT INFORMATION
  Report Type: Spontaneous
  Country: CA (occurrence: CA)
  Receive Date: 20130726
  Receipt Date: 20130726
  Transmission Date: 20140515
  Serious: Yes (Death, Hospitalization)
  Sender: FDA-Public Use
  Company Number: CA-GLAXOSMITHKLINE-A1012750A

PATIENT
  Age: 84 Year
  Sex: Male
  Weight: 55.9 kg

DRUGS (6)
  1. ADVAIR [Suspect]
     Indication: CHRONIC OBSTRUCTIVE PULMONARY DISEASE
     Dosage: 1PUFF TWICE PER DAY
     Route: 055
     Dates: start: 201205
  2. SYNTHROID [Concomitant]
  3. TIMOLOL [Concomitant]
  4. VENTOLIN [Concomitant]
  5. ATROVENT [Concomitant]
  6. SYMBICORT [Concomitant]

REACTIONS (5)
  - Decreased appetite [Not Recovered/Not Resolved]
  - Ageusia [Not Recovered/Not Resolved]
  - Weight decreased [Not Recovered/Not Resolved]
  - Pulmonary oedema [Fatal]
  - Cardiac arrest [Fatal]
